FAERS Safety Report 17469994 (Version 2)
Quarter: 2020Q3

REPORT INFORMATION
  Report Type: Spontaneous
  Country: JP (occurrence: JP)
  Receive Date: 20200227
  Receipt Date: 20200915
  Transmission Date: 20201102
  Serious: Yes (Other)
  Sender: FDA-Public Use
  Company Number: JP-BAUSCH-BL-2019-012325

PATIENT
  Age: 79 Year
  Sex: Male
  Weight: 85.7 kg

DRUGS (8)
  1. COIX SEED EXTRACT [Concomitant]
     Indication: PRODUCT USED FOR UNKNOWN INDICATION
  2. OLOPATADINE HYDROCHLORIDE. [Concomitant]
     Active Substance: OLOPATADINE HYDROCHLORIDE
     Indication: PRODUCT USED FOR UNKNOWN INDICATION
  3. BESOFTEN [Concomitant]
     Active Substance: PENTOSAN POLYSULFATE SODIUM
     Indication: PRODUCT USED FOR UNKNOWN INDICATION
     Dosage: (EXCEPT LOTION FOR EYE)
  4. LUMICEF [Suspect]
     Active Substance: BRODALUMAB
     Indication: PSORIASIS
     Dosage: SYRINGE
     Route: 058
     Dates: start: 201901
  5. ATARAX?P [Concomitant]
     Active Substance: HYDROXYZINE HYDROCHLORIDE
     Indication: PRODUCT USED FOR UNKNOWN INDICATION
  6. HIRUDOID [Concomitant]
     Active Substance: GLYCOSAMINOGLYCANS
     Indication: PRODUCT USED FOR UNKNOWN INDICATION
  7. BONALFA [Concomitant]
     Active Substance: TACALCITOL
     Indication: PRODUCT USED FOR UNKNOWN INDICATION
     Dosage: EXCEPT LOTION FOR EYE
  8. MYSER [Concomitant]
     Indication: PRODUCT USED FOR UNKNOWN INDICATION

REACTIONS (4)
  - Pericardial effusion [Unknown]
  - Pleural effusion [Unknown]
  - Fungal infection [Recovered/Resolved]
  - Tinea faciei [Recovered/Resolved]

NARRATIVE: CASE EVENT DATE: 20190116
